FAERS Safety Report 11286854 (Version 2)
Quarter: 2015Q3

REPORT INFORMATION
  Report Type: Spontaneous
  Country: JP (occurrence: JP)
  Receive Date: 20150721
  Receipt Date: 20150803
  Transmission Date: 20151125
  Serious: Yes (Hospitalization, Other)
  Sender: FDA-Public Use
  Company Number: JP-009507513-1507JPN008828

PATIENT
  Age: 83 Year
  Sex: Female

DRUGS (2)
  1. AROGLYCEM [Suspect]
     Active Substance: DIAZOXIDE
     Indication: HYPOGLYCAEMIA
     Dosage: DAILY DOSAGE UNKNOWN
     Route: 048
     Dates: start: 2015, end: 201507
  2. AROGLYCEM [Suspect]
     Active Substance: DIAZOXIDE
     Dosage: DAILY DOSAGE UNKNOWN
     Route: 048
     Dates: start: 201507

REACTIONS (1)
  - Cardiac failure acute [Unknown]

NARRATIVE: CASE EVENT DATE: 20150709
